FAERS Safety Report 7761309-7 (Version None)
Quarter: 2011Q3

REPORT INFORMATION
  Report Type: 
  Country: None (occurrence: None)
  Receive Date: 20110920
  Receipt Date: 20110915
  Transmission Date: 20111222
  Serious: Yes (Other)
  Sender: FDA-Public Use
  Company Number: US-PFIZER INC-2009313571

PATIENT
  Age: 73 Year
  Sex: Female

DRUGS (13)
  1. ZOLOFT [Suspect]
     Dosage: 25 MG, 1X/DAY
     Route: 048
     Dates: start: 20091124, end: 20091124
  2. GINKGO BILOBA [Concomitant]
     Dosage: UNK
     Route: 048
  3. CALCIUM WITH VITAMIN D [Concomitant]
     Dosage: UNK
     Route: 048
  4. WELLBUTRIN [Interacting]
     Indication: DEPRESSION
     Dosage: 150 MG, UNK
     Dates: start: 20110801
  5. BUTALBITAL [Concomitant]
     Indication: MIGRAINE
     Dosage: UNK
     Route: 048
  6. BYSTOLIC [Interacting]
     Indication: HYPERTENSION
     Dosage: 10 MG, 1X/DAY
     Route: 048
     Dates: start: 20091209
  7. MULTI-VITAMINS [Concomitant]
     Dosage: UNK
     Route: 048
  8. ZOLOFT [Suspect]
     Indication: DEPRESSION
     Dosage: 6.25 MG, 1X/DAY
     Route: 048
     Dates: start: 20091120, end: 20091121
  9. BYSTOLIC [Interacting]
     Dosage: 5 MG, 1X/DAY
     Route: 048
     Dates: start: 20100506, end: 20100506
  10. BYSTOLIC [Interacting]
     Dosage: 2.5 MG, 1X/DAY
     Dates: start: 20100507
  11. SYNTHROID [Concomitant]
     Indication: HYPOTHYROIDISM
     Dosage: 25 MCG, 1X/DAY
     Route: 048
  12. ZOLOFT [Suspect]
     Dosage: 12.5 MG, 1X/DAY
     Route: 048
     Dates: start: 20091122, end: 20091123
  13. BYSTOLIC [Interacting]
     Indication: EXTRASYSTOLES
     Dosage: 5 MG, 1X/DAY
     Route: 048
     Dates: start: 20080101, end: 20091208

REACTIONS (6)
  - ASTHENIA [None]
  - SYNCOPE [None]
  - DRUG INEFFECTIVE [None]
  - TREMOR [None]
  - DRUG INTERACTION [None]
  - EXTRASYSTOLES [None]
